FAERS Safety Report 11644446 (Version 1)
Quarter: 2015Q4

REPORT INFORMATION
  Report Type: Spontaneous
  Country: US (occurrence: None)
  Receive Date: 20151019
  Receipt Date: 20151019
  Transmission Date: 20160304
  Serious: No
  Sender: FDA-Public Use
  Company Number: None

PATIENT
  Age: 40 Year
  Sex: Female

DRUGS (24)
  1. OXYCODONE [Concomitant]
     Active Substance: OXYCODONE
  2. OXYCODONE AND ACETAMINOPHEN [Concomitant]
     Active Substance: ACETAMINOPHEN\OXYCODONE\OXYCODONE HYDROCHLORIDE
  3. BUT/APAP/CAF [Concomitant]
  4. BACLOFEN. [Concomitant]
     Active Substance: BACLOFEN
  5. VENLAFAXINE CAP [Concomitant]
  6. ONDANSETRON [Concomitant]
     Active Substance: ONDANSETRON
  7. NASONEX [Concomitant]
     Active Substance: MOMETASONE FUROATE
  8. STELARA [Suspect]
     Active Substance: USTEKINUMAB
     Indication: PSORIASIS
     Dosage: Q12WK, SQ
     Dates: start: 20150409
  9. MUPIROCIN. [Concomitant]
     Active Substance: MUPIROCIN
  10. METFORMIN [Concomitant]
     Active Substance: METFORMIN HYDROCHLORIDE
  11. LOSARTAN POT [Concomitant]
  12. FLUCONAZOLE. [Concomitant]
     Active Substance: FLUCONAZOLE
  13. AMITRIPTYLIN [Concomitant]
     Active Substance: AMITRIPTYLINE
  14. CELECOXIB. [Concomitant]
     Active Substance: CELECOXIB
  15. SPIRONOLACT [Concomitant]
  16. RANITIDINE [Concomitant]
     Active Substance: RANITIDINE\RANITIDINE HYDROCHLORIDE
  17. PRAMIPEXOLE. [Concomitant]
     Active Substance: PRAMIPEXOLE
  18. METOCLOPRAM [Concomitant]
     Active Substance: METOCLOPRAMIDE
  19. PONARIS [Concomitant]
     Active Substance: CAJUPUT OIL\EUCALYPTUS OIL\PEPPERMINT OIL
  20. LEVOFLOXACIN. [Concomitant]
     Active Substance: LEVOFLOXACIN
  21. HYDROCORT AC SUP [Concomitant]
  22. EVAMIST [Concomitant]
     Active Substance: ESTRADIOL
  23. DEXILANT [Concomitant]
     Active Substance: DEXLANSOPRAZOLE
  24. BISOPROL FUM [Concomitant]
     Active Substance: BISOPROLOL FUMARATE

REACTIONS (1)
  - Condition aggravated [None]
